FAERS Safety Report 15436679 (Version 1)
Quarter: 2018Q3

REPORT INFORMATION
  Report Type: Spontaneous
  Country: US (occurrence: US)
  Receive Date: 20180927
  Receipt Date: 20180927
  Transmission Date: 20181010
  Serious: No
  Sender: FDA-Public Use
  Company Number: US-PFIZER INC-2018386813

PATIENT
  Age: 36 Year
  Sex: Female
  Weight: 63.5 kg

DRUGS (1)
  1. HYDROXYZINE PAMOATE. [Suspect]
     Active Substance: HYDROXYZINE PAMOATE
     Indication: PRURITUS
     Dosage: 25 MG, DAILY (ONE A DAY)
     Route: 048

REACTIONS (2)
  - Drug effect incomplete [Unknown]
  - Somnolence [Unknown]
